FAERS Safety Report 19043509 (Version 1)
Quarter: 2021Q1

REPORT INFORMATION
  Report Type: Spontaneous
  Country: CA (occurrence: CA)
  Receive Date: 20210323
  Receipt Date: 20210323
  Transmission Date: 20210420
  Serious: Yes (Life-Threatening, Hospitalization)
  Sender: FDA-Public Use
  Company Number: CA-PFIZER INC-2021263160

PATIENT
  Age: 4 Year
  Sex: Female
  Weight: 16 kg

DRUGS (3)
  1. VANCOMYCIN [Concomitant]
     Active Substance: VANCOMYCIN
     Dosage: UNK
  2. TEMSIROLIMUS. [Suspect]
     Active Substance: TEMSIROLIMUS
     Indication: EMBRYONAL RHABDOMYOSARCOMA
     Dosage: 10 MG
     Route: 042
  3. VINCRISTINE SULFATE. [Suspect]
     Active Substance: VINCRISTINE SULFATE
     Indication: EMBRYONAL RHABDOMYOSARCOMA
     Dosage: 1 MG
     Route: 040

REACTIONS (3)
  - Anaemia [Recovered/Resolved]
  - Vomiting [Recovered/Resolved]
  - Neutropenia [Recovered/Resolved]
